FAERS Safety Report 23698943 (Version 4)
Quarter: 2024Q2

REPORT INFORMATION
  Report Type: Report from Study
  Country: US (occurrence: US)
  Receive Date: 20240402
  Receipt Date: 20240430
  Transmission Date: 20240716
  Serious: Yes (Other)
  Sender: FDA-Public Use
  Company Number: US-BRISTOL-MYERS SQUIBB COMPANY-2024-046140

PATIENT
  Age: 51 Year
  Sex: Female

DRUGS (1)
  1. ORENCIA [Suspect]
     Active Substance: ABATACEPT
     Indication: Rheumatoid arthritis
     Dosage: DOSE : 1 SYRINGE; FREQ : EVERY WEEK
     Route: 058
     Dates: start: 202307

REACTIONS (3)
  - Scratch [Unknown]
  - Injury associated with device [Unknown]
  - Device difficult to use [Unknown]
